FAERS Safety Report 8053606-5 (Version None)
Quarter: 2012Q1

REPORT INFORMATION
  Report Type: 
  Country: None (occurrence: None)
  Receive Date: 20120118
  Receipt Date: 20120112
  Transmission Date: 20120608
  Serious: Yes (Other)
  Sender: FDA-Public Use
  Company Number: GB-MERCK-1201GBR00038

PATIENT
  Age: 29 Year
  Sex: Male

DRUGS (1)
  1. PROPECIA [Suspect]
     Indication: ALOPECIA
     Route: 048
     Dates: start: 20111006, end: 20111020

REACTIONS (4)
  - EJACULATION DISORDER [None]
  - PROSTATE TENDERNESS [None]
  - TESTICULAR PAIN [None]
  - PAIN [None]
